FAERS Safety Report 6709919-X (Version None)
Quarter: 2010Q2

REPORT INFORMATION
  Report Type: 
  Country: None (occurrence: None)
  Receive Date: 20100504
  Receipt Date: 20100417
  Transmission Date: 20101027
  Serious: Yes (Death, Hospitalization)
  Sender: FDA-Public Use
  Company Number: GB-TEVA-228545ISR

PATIENT
  Sex: Male

DRUGS (22)
  1. PREDNISOLONE [Suspect]
     Indication: PROSTATE CANCER
     Route: 048
     Dates: start: 20090430, end: 20090508
  2. ABIRATERONE ACETATE OR PLACEBO [Suspect]
     Indication: PROSTATE CANCER
     Route: 048
     Dates: start: 20090430, end: 20090508
  3. ALFENTANIL [Concomitant]
     Dates: start: 20090509
  4. ALFENTANIL [Concomitant]
     Dates: start: 20090516
  5. ALFENTANIL [Concomitant]
     Dates: start: 20090517
  6. ALFENTANIL [Concomitant]
     Dates: start: 20090514
  7. ALFENTANIL [Concomitant]
     Dates: start: 20090513
  8. LANSOPRAZOLE [Concomitant]
     Indication: PROPHYLAXIS AGAINST GASTROINTESTINAL ULCER
     Route: 048
     Dates: start: 20090224, end: 20090515
  9. METOCLOPRAMIDE HYDROCHLORIDE [Concomitant]
     Indication: PROPHYLAXIS OF NAUSEA AND VOMITING
     Route: 048
     Dates: start: 20090422, end: 20090507
  10. MORPHINE SULFATE [Concomitant]
     Indication: CANCER PAIN
     Route: 048
     Dates: start: 20090414, end: 20090427
  11. PARACETAMOL [Concomitant]
     Indication: CANCER PAIN
     Route: 048
     Dates: start: 20090422, end: 20090515
  12. DICLOFENAC [Concomitant]
     Indication: CANCER PAIN
     Route: 048
     Dates: start: 19990628, end: 20090508
  13. ENOXAPARIN SODIUM [Concomitant]
     Indication: THROMBOSIS PROPHYLAXIS
     Route: 058
     Dates: start: 20090401, end: 20090512
  14. GOSERELIN [Concomitant]
     Indication: HORMONE THERAPY
     Route: 058
     Dates: start: 20090430, end: 20090518
  15. MORPHINE SULFATE [Concomitant]
     Indication: PROSTATE CANCER
     Route: 048
     Dates: start: 20090414, end: 20090427
  16. HALOPERIDOL [Concomitant]
     Route: 058
     Dates: start: 20090512, end: 20090515
  17. SODIUM CHLORIDE [Concomitant]
     Route: 042
  18. PIPERACILLIN AND TAZOBACTAM [Concomitant]
     Dates: start: 20090510, end: 20090515
  19. MIDAZOLAM HCL [Concomitant]
     Dates: start: 20090515, end: 20090518
  20. MIDAZOLAM HCL [Concomitant]
     Dates: start: 20090516, end: 20090517
  21. MIDAZOLAM HCL [Concomitant]
     Route: 058
     Dates: start: 20090517, end: 20090518
  22. LEVOMEPROMAZINE [Concomitant]
     Route: 058
     Dates: start: 20090516, end: 20090516

REACTIONS (5)
  - DEATH [None]
  - DISEASE PROGRESSION [None]
  - NAUSEA [None]
  - SEPSIS [None]
  - VOMITING [None]
